FAERS Safety Report 4921385-3 (Version None)
Quarter: 2006Q1

REPORT INFORMATION
  Report Type: 
  Country: None (occurrence: None)
  Receive Date: 20060224
  Receipt Date: 20051220
  Transmission Date: 20060701
  Serious: Yes (Other)
  Sender: FDA-Public Use
  Company Number: US-AMGEN-US162084

PATIENT
  Sex: Male
  Weight: 90.8 kg

DRUGS (3)
  1. ARANESP [Suspect]
     Indication: MYELODYSPLASTIC SYNDROME
     Route: 058
     Dates: start: 20050808, end: 20050922
  2. HYDROXYUREA [Suspect]
     Dates: start: 20050808
  3. ZYLOPRIM [Concomitant]
     Dates: start: 20050808

REACTIONS (9)
  - BONE MARROW FAILURE [None]
  - DRUG DOSE OMISSION [None]
  - IDIOSYNCRATIC DRUG REACTION [None]
  - NORMOCHROMIC NORMOCYTIC ANAEMIA [None]
  - PARVOVIRUS INFECTION [None]
  - RED BLOOD CELL ABNORMALITY [None]
  - REFRACTORY ANAEMIA WITH AN EXCESS OF BLASTS [None]
  - THROMBOCYTHAEMIA [None]
  - THYMOMA [None]
